FAERS Safety Report 9246300 (Version 1)
Quarter: 2013Q2

REPORT INFORMATION
  Report Type: Report from Study
  Country: ID (occurrence: ID)
  Receive Date: 20130422
  Receipt Date: 20130422
  Transmission Date: 20140414
  Serious: Yes (Death)
  Sender: FDA-Public Use
  Company Number: PHHY2013ID039062

PATIENT
  Age: 68 Year
  Sex: Male

DRUGS (1)
  1. GLIVEC [Suspect]
     Indication: CHRONIC MYELOID LEUKAEMIA
     Dosage: 100 MG, ONCE4SDO
     Route: 048

REACTIONS (4)
  - Death [Fatal]
  - Vision blurred [Unknown]
  - Back pain [Unknown]
  - Gingival swelling [Unknown]
